FAERS Safety Report 5318825-7 (Version None)
Quarter: 2007Q2

REPORT INFORMATION
  Report Type: 
  Country: None (occurrence: None)
  Receive Date: 20070508
  Receipt Date: 20070423
  Transmission Date: 20071010
  Serious: Yes (Other)
  Sender: FDA-Public Use
  Company Number: ES-ELI_LILLY_AND_COMPANY-ES200705001451

PATIENT
  Age: 51 Year
  Sex: Male
  Weight: 80 kg

DRUGS (6)
  1. CYMBALTA [Suspect]
     Indication: DEPRESSION
     Dosage: 60 MG, DAILY (1/D)
     Route: 048
     Dates: start: 20061218, end: 20070215
  2. TRANKIMAZIN [Concomitant]
     Indication: NEUROSIS
     Dosage: 1 MG, 2/D
     Route: 048
     Dates: start: 20061218
  3. TRANXILIUM [Concomitant]
     Indication: ANXIETY
     Dosage: 5 MG, DAILY (1/D)
     Route: 048
     Dates: start: 20061010
  4. ADIRO [Concomitant]
     Dosage: 100 MG, DAILY (1/D)
     Route: 048
  5. ENALAPRIL [Concomitant]
     Indication: CARDIAC FAILURE CONGESTIVE
     Dosage: 5 MG, DAILY (1/D)
     Route: 048
  6. ATENOLOL [Concomitant]
     Dosage: 50 MG, DAILY (1/D)
     Route: 048

REACTIONS (1)
  - AUTOMATISM [None]
